FAERS Safety Report 15789682 (Version 2)
Quarter: 2019Q1

REPORT INFORMATION
  Report Type: Spontaneous
  Country: IE (occurrence: IE)
  Receive Date: 20190104
  Receipt Date: 20190110
  Transmission Date: 20190417
  Serious: Yes (Hospitalization, Other)
  Sender: FDA-Public Use
  Company Number: IE-PFIZER INC-2019002219

PATIENT
  Age: 68 Year
  Sex: Male

DRUGS (11)
  1. HYDROCORTISONE SODIUM SUCCINATE [Suspect]
     Active Substance: HYDROCORTISONE SODIUM SUCCINATE
     Indication: CHRONIC OBSTRUCTIVE PULMONARY DISEASE
     Dosage: UNK
     Route: 042
  2. COLECALCIFEROL T [Concomitant]
     Dosage: UNK, ONCE DAILY
  3. HYDROCORTISONE SODIUM SUCCINATE [Suspect]
     Active Substance: HYDROCORTISONE SODIUM SUCCINATE
     Indication: CHRONIC OBSTRUCTIVE PULMONARY DISEASE
     Dosage: 20 MG, (15 MG IN THE MORNING AND 5 MG AT NIGHT)
  4. PREDNISOLONE. [Suspect]
     Active Substance: PREDNISOLONE
     Indication: CHRONIC OBSTRUCTIVE PULMONARY DISEASE
     Dosage: UNK, UNK (FREQUENT COURSES)
     Route: 048
  5. TIOTROPIUM BROMIDE [Concomitant]
     Active Substance: TIOTROPIUM BROMIDE
     Indication: CHRONIC OBSTRUCTIVE PULMONARY DISEASE
     Dosage: 2.5 UG, 1X/DAY
     Route: 055
  6. THEOPHYLLINE [Concomitant]
     Active Substance: THEOPHYLLINE ANHYDROUS
     Indication: CHRONIC OBSTRUCTIVE PULMONARY DISEASE
     Dosage: 200 MG, 1X/DAY
  7. AZITHROMYCIN ANHYDROUS. [Concomitant]
     Active Substance: AZITHROMYCIN ANHYDROUS
     Dosage: 500 MG, UNK (THREE TIMES A WEEK)
  8. LANSOPRAZOLE. [Concomitant]
     Active Substance: LANSOPRAZOLE
     Dosage: 30 MG, UNK
  9. CALCIUM CARBONATE. [Concomitant]
     Active Substance: CALCIUM CARBONATE
     Dosage: UNK, 1X/DAY
  10. FLUTICASONE. [Suspect]
     Active Substance: FLUTICASONE
     Indication: CHRONIC OBSTRUCTIVE PULMONARY DISEASE
     Dosage: 250 UG, 2X/DAY
     Route: 055
  11. MONTELUKAST [Concomitant]
     Active Substance: MONTELUKAST SODIUM
     Indication: CHRONIC OBSTRUCTIVE PULMONARY DISEASE
     Dosage: 10 MG, 1X/DAY

REACTIONS (2)
  - Disseminated cryptococcosis [Recovering/Resolving]
  - Cellulitis [Recovering/Resolving]
